FAERS Safety Report 8880866 (Version 1)
Quarter: 2012Q4

REPORT INFORMATION
  Report Type: 
  Country: JP (occurrence: JP)
  Receive Date: 20121101
  Receipt Date: 20121101
  Transmission Date: 20130627
  Serious: Yes (Other)
  Sender: FDA-Public Use
  Company Number: JP-009507513-1210JPN012011

PATIENT
  Age: 62 Year
  Sex: Female

DRUGS (8)
  1. REBETOL [Suspect]
     Indication: HEPATITIS C
     Dosage: 200mg in the morning, 400mg in the evening,qd
     Route: 048
     Dates: start: 20120710
  2. FERON [Suspect]
     Indication: HEPATITIS C
     Dosage: 3 million IU, bid
     Route: 042
     Dates: start: 20120710, end: 20120713
  3. FERON [Suspect]
     Dosage: 6 million IU, bid
     Route: 042
     Dates: start: 20120714, end: 20120716
  4. FERON [Suspect]
     Dosage: 3 million IU, bid
     Route: 042
     Dates: start: 20120717, end: 20120723
  5. LOXONIN [Concomitant]
     Indication: HEADACHE
     Dosage: UNK
     Route: 048
     Dates: start: 20120710
  6. LOXONIN [Concomitant]
     Indication: PYREXIA
  7. MUCOSTA [Concomitant]
     Indication: HEADACHE
     Dosage: UNK
     Route: 048
     Dates: start: 20120710
  8. MUCOSTA [Concomitant]
     Indication: PYREXIA

REACTIONS (1)
  - Platelet count decreased [Recovering/Resolving]
